FAERS Safety Report 4436661-0 (Version None)
Quarter: 2004Q3

REPORT INFORMATION
  Report Type: 
  Country: None (occurrence: None)
  Receive Date: 20040830
  Receipt Date: 20040729
  Transmission Date: 20050211
  Serious: No
  Sender: FDA-Public Use
  Company Number: US-BRISTOL-MYERS SQUIBB COMPANY-12655833

PATIENT
  Age: 46 Year
  Sex: Male
  Weight: 100 kg

DRUGS (6)
  1. ABILIFY [Suspect]
     Indication: BIPOLAR DISORDER
     Route: 048
     Dates: start: 20040728
  2. PROVIGIL [Concomitant]
  3. TOPAMAX [Concomitant]
  4. BUSPAR [Concomitant]
  5. ADDERALL 20 [Concomitant]
  6. CLARITIN [Concomitant]

REACTIONS (5)
  - FEELING HOT AND COLD [None]
  - MUSCULOSKELETAL STIFFNESS [None]
  - NAUSEA [None]
  - PAIN [None]
  - RENAL PAIN [None]
